FAERS Safety Report 9498317 (Version 9)
Quarter: 2018Q4

REPORT INFORMATION
  Report Type: Report from Study
  Country: JP (occurrence: JP)
  Receive Date: 20130904
  Receipt Date: 20181227
  Transmission Date: 20190205
  Serious: Yes (Life-Threatening, Hospitalization, Disabling, Other)
  Sender: FDA-Public Use
  Company Number: JP-PFIZER INC-2013252011

PATIENT
  Age: 64 Year
  Sex: Female
  Weight: 52 kg

DRUGS (24)
  1. OXAROL [Concomitant]
     Active Substance: MAXACALCITOL
     Indication: CHRONIC KIDNEY DISEASE
  2. OXAROL [Concomitant]
     Active Substance: MAXACALCITOL
     Indication: HYPERPHOSPHATAEMIA
     Dosage: 7.5 ?G/WEEK, UNKNOWN FREQ.
     Route: 065
     Dates: end: 20130613
  3. LASIX [Concomitant]
     Active Substance: FUROSEMIDE
     Indication: PROPHYLAXIS
     Dosage: 120 MG, WEEKLY
     Route: 048
     Dates: end: 20130706
  4. RENAGEL [Concomitant]
     Active Substance: SEVELAMER HYDROCHLORIDE
     Indication: HYPERPHOSPHATAEMIA
     Dosage: 750 MG/DAY, UNKNOWN FREQ.
     Route: 048
     Dates: end: 20130411
  5. CALTAN [Concomitant]
     Active Substance: CALCIUM CARBONATE
     Indication: CHRONIC KIDNEY DISEASE
  6. BONALON [Concomitant]
     Active Substance: ALENDRONATE SODIUM
     Indication: PROPHYLAXIS
     Dosage: 35 MG/WEEK, UNKNOWN FREQ.
     Route: 048
     Dates: start: 20130521, end: 20130706
  7. RENAGEL [Concomitant]
     Active Substance: SEVELAMER HYDROCHLORIDE
     Indication: CHRONIC KIDNEY DISEASE
  8. ROXATI [Concomitant]
     Indication: PROPHYLAXIS
     Dosage: 75 MG/DAY, UNKNOWN FREQ.
     Route: 048
     Dates: end: 20130706
  9. KIKLIN [Suspect]
     Active Substance: BIXALOMER
     Indication: HYPERPHOSPHATAEMIA
     Dosage: 250 MG, 3X/DAY
     Route: 048
     Dates: start: 20130411, end: 20130515
  10. ROCALTROL [Concomitant]
     Active Substance: CALCITRIOL
     Indication: HYPERPHOSPHATAEMIA
     Dosage: 0.5 ?G/WEEK, UNKNOWN FREQ.
     Route: 065
     Dates: start: 20130615, end: 20130706
  11. RENAGEL [Concomitant]
     Active Substance: SEVELAMER HYDROCHLORIDE
     Indication: CHRONIC KIDNEY DISEASE
  12. CALTAN [Concomitant]
     Active Substance: CALCIUM CARBONATE
     Indication: CHRONIC KIDNEY DISEASE
  13. ROCALTROL [Concomitant]
     Active Substance: CALCITRIOL
     Indication: CHRONIC KIDNEY DISEASE
  14. ALLOPURINOL. [Concomitant]
     Active Substance: ALLOPURINOL
     Indication: PROPHYLAXIS
     Dosage: 200 MG/DAY, UNKNOWN FREQ.
     Route: 048
     Dates: end: 20130706
  15. KIKLIN [Suspect]
     Active Substance: BIXALOMER
     Indication: CHRONIC KIDNEY DISEASE
     Dosage: 500 MG, 3X/DAY
     Route: 048
     Dates: start: 20130516, end: 20130706
  16. CALTAN [Concomitant]
     Active Substance: CALCIUM CARBONATE
     Indication: HYPERPHOSPHATAEMIA
     Dosage: 1500 MG/DAY, UNKNOWN FREQ.
     Route: 048
     Dates: end: 20130706
  17. CELECOX [Suspect]
     Active Substance: CELECOXIB
     Indication: OSTEOARTHRITIS
     Dosage: 200 MG/DAY, UNKNOWN FREQ.
     Route: 048
     Dates: end: 20130706
  18. OXAROL [Concomitant]
     Active Substance: MAXACALCITOL
     Indication: CHRONIC KIDNEY DISEASE
  19. ROCALTROL [Concomitant]
     Active Substance: CALCITRIOL
     Indication: CHRONIC KIDNEY DISEASE
  20. LIVALO [Concomitant]
     Active Substance: PITAVASTATIN CALCIUM
     Indication: DYSLIPIDAEMIA
     Dosage: 1 MG, 1X/DAY
     Route: 048
     Dates: end: 20130706
  21. NE SOFT [Concomitant]
     Indication: PROPHYLAXIS
     Dosage: 400 MG/DAY, UNKNOWN FREQ.
     Route: 048
     Dates: end: 20130706
  22. REMITCH [Concomitant]
     Active Substance: NALFURAFINE HYDROCHLORIDE
     Indication: PRURITUS
     Dosage: 2.5 ?G/DAY, UNKNOWN FREQ.
     Route: 048
     Dates: start: 20130604, end: 20130706
  23. POLARAMINE [Concomitant]
     Active Substance: DEXCHLORPHENIRAMINE MALEATE
     Indication: PRURITUS
     Dosage: 2 MG/DAY, UNKNOWN FREQ.
     Route: 048
     Dates: start: 20130525, end: 20130706
  24. FEXOFENADINE HYDROCHLORIDE. [Concomitant]
     Active Substance: FEXOFENADINE HYDROCHLORIDE
     Indication: PRURITUS
     Dosage: 60 MG/DAY, UNKNOWN FREQ.
     Route: 048
     Dates: start: 20130528, end: 20130706

REACTIONS (9)
  - Infectious pleural effusion [Unknown]
  - Pruritus [Recovered/Resolved]
  - Gastric ulcer haemorrhage [Recovered/Resolved]
  - Septic shock [Recovering/Resolving]
  - Constipation [Recovered/Resolved with Sequelae]
  - Peritonitis [Recovered/Resolved with Sequelae]
  - Multiple organ dysfunction syndrome [Recovering/Resolving]
  - Large intestine perforation [Recovered/Resolved with Sequelae]
  - Intentional product use issue [Unknown]

NARRATIVE: CASE EVENT DATE: 20130411
